FAERS Safety Report 24178228 (Version 1)
Quarter: 2024Q3

REPORT INFORMATION
  Report Type: Spontaneous
  Country: GB (occurrence: GB)
  Receive Date: 20240806
  Receipt Date: 20240806
  Transmission Date: 20241016
  Serious: Yes (Other)
  Sender: ACCORD
  Company Number: None

PATIENT
  Age: 39 Year
  Sex: Male
  Weight: 59 kg

DRUGS (3)
  1. ATORVASTATIN [Suspect]
     Active Substance: ATORVASTATIN
     Indication: Transient ischaemic attack
     Dosage: 40 MG OD
     Dates: start: 20240107
  2. FINASTERIDE [Concomitant]
     Active Substance: FINASTERIDE
     Dates: start: 2016
  3. ASPIRIN [Concomitant]
     Active Substance: ASPIRIN
     Indication: Transient ischaemic attack
     Dates: start: 202401

REACTIONS (2)
  - Tinea capitis [Not Recovered/Not Resolved]
  - Skin plaque [Not Recovered/Not Resolved]
